FAERS Safety Report 4955747-5 (Version None)
Quarter: 2006Q1

REPORT INFORMATION
  Report Type: 
  Country: None (occurrence: None)
  Receive Date: 20060328
  Receipt Date: 20060320
  Transmission Date: 20060701
  Serious: Yes (Other)
  Sender: FDA-Public Use
  Company Number: GB-ROCHE-441545

PATIENT
  Age: 72 Year
  Sex: Male
  Weight: 101.5 kg

DRUGS (18)
  1. BONVIVA [Suspect]
     Indication: OSTEOPOROSIS
     Route: 048
     Dates: start: 20051223, end: 20060223
  2. GABAPENTIN [Concomitant]
     Route: 065
  3. AMITRIPTYLINE [Concomitant]
     Route: 065
  4. TEMAZEPAM [Concomitant]
     Route: 065
  5. ATENOLOL [Concomitant]
     Route: 065
  6. GLYCERYL TRINITRATE [Concomitant]
     Route: 065
  7. ISOSORBIDE MONONITRATE [Concomitant]
     Route: 065
  8. NICORANDIL [Concomitant]
     Route: 065
  9. PANTOPRAZOLE [Concomitant]
     Route: 065
  10. GLIMEPIRIDE [Concomitant]
     Route: 065
  11. METFORMIN HYDROCHLORIDE [Concomitant]
     Route: 065
  12. IBUPROFEN [Concomitant]
     Route: 065
  13. OXYCODONE HCL [Concomitant]
     Route: 065
  14. CLOPIDOGREL [Concomitant]
     Route: 065
  15. ATORVASTATIN CALCIUM [Concomitant]
     Route: 065
  16. CO-CODAMOL [Concomitant]
     Route: 065
  17. INSULATARD NPH HUMAN [Concomitant]
     Route: 065
  18. FRUSEMIDE [Concomitant]
     Route: 065

REACTIONS (1)
  - HAEMOPTYSIS [None]
